FAERS Safety Report 10421162 (Version 2)
Quarter: 2014Q3

REPORT INFORMATION
  Report Type: Spontaneous
  Country: IN (occurrence: IN)
  Receive Date: 20140830
  Receipt Date: 20140830
  Transmission Date: 20150326
  Serious: Yes (Other)
  Sender: FDA-Public Use
  Company Number: IN-AUROBINDO-AUR-APL-2014-08852

PATIENT
  Age: 27 Year
  Sex: Female

DRUGS (1)
  1. LAMOTRIGINE 50MG [Suspect]
     Active Substance: LAMOTRIGINE
     Indication: JUVENILE MYOCLONIC EPILEPSY
     Dosage: 50 MG, TWO TIMES A DAY
     Route: 065

REACTIONS (11)
  - Myoclonus [Recovered/Resolved]
  - Condition aggravated [Recovered/Resolved]
  - Hemiparesis [Recovered/Resolved]
  - Vitamin D decreased [Recovered/Resolved]
  - Mastication disorder [Recovered/Resolved]
  - Hypoaesthesia [Recovered/Resolved]
  - Relapsing-remitting multiple sclerosis [None]
  - Multiple sclerosis [Recovered/Resolved]
  - Sensory loss [Recovered/Resolved]
  - Demyelination [Recovered/Resolved]
  - Muscular weakness [Recovered/Resolved]
